FAERS Safety Report 4318570-0 (Version None)
Quarter: 2004Q1

REPORT INFORMATION
  Report Type: 
  Country: None (occurrence: None)
  Receive Date: 20040315
  Receipt Date: 20040304
  Transmission Date: 20041129
  Serious: Yes (Life-Threatening, Hospitalization, Other)
  Sender: FDA-Public Use
  Company Number: 2004193422FR

PATIENT
  Age: 70 Year
  Sex: Male
  Weight: 69 kg

DRUGS (3)
  1. ESTRACYT (ESTRAMUSTINE PHOSPHATE) CAPSULE [Suspect]
     Indication: PROSTATE CANCER METASTATIC
     Dosage: 280 MG, TID, ORAL
     Route: 048
     Dates: start: 20030901, end: 20031101
  2. TAXOTERE [Suspect]
     Indication: PROSTATE CANCER METASTATIC
     Dosage: 60 MG, D1 + D8, IV
     Route: 042
     Dates: start: 20030901, end: 20031101
  3. DEXAMETHASONE [Concomitant]

REACTIONS (9)
  - FIBRIN D DIMER INCREASED [None]
  - INFECTION [None]
  - INTERSTITIAL LUNG DISEASE [None]
  - LYMPHOCYTOSIS [None]
  - NEUTROPHIL PERCENTAGE DECREASED [None]
  - OEDEMA PERIPHERAL [None]
  - PNEUMONITIS [None]
  - TACHYCARDIA [None]
  - TACHYPNOEA [None]
